FAERS Safety Report 18764735 (Version 10)
Quarter: 2022Q1

REPORT INFORMATION
  Report Type: Report from Study
  Country: CA (occurrence: CA)
  Receive Date: 20210120
  Receipt Date: 20220118
  Transmission Date: 20220423
  Serious: Yes (Other)
  Sender: FDA-Public Use
  Company Number: NVSC2019CA077190

PATIENT
  Sex: Female

DRUGS (3)
  1. SANDOSTATIN LAR DEPOT [Suspect]
     Active Substance: OCTREOTIDE ACETATE
     Indication: Carcinoid tumour
     Dosage: 20 MG, Q4W
     Route: 030
     Dates: start: 20191025
  2. SANDOSTATIN LAR DEPOT [Suspect]
     Active Substance: OCTREOTIDE ACETATE
  3. SANDOSTATIN LAR DEPOT [Suspect]
     Active Substance: OCTREOTIDE ACETATE

REACTIONS (21)
  - Transfusion-related circulatory overload [Unknown]
  - Gastrointestinal carcinoma [Unknown]
  - Second primary malignancy [Unknown]
  - Carcinoid tumour [Unknown]
  - Malignant neoplasm progression [Unknown]
  - Metastases to pancreas [Unknown]
  - Metastases to liver [Unknown]
  - Sensitive skin [Unknown]
  - Musculoskeletal pain [Not Recovered/Not Resolved]
  - Fall [Unknown]
  - Bursitis [Recovered/Resolved]
  - Urinary tract infection [Unknown]
  - Vaginal infection [Recovered/Resolved]
  - Myalgia [Recovered/Resolved]
  - Haemorrhoids [Unknown]
  - Urticaria [Recovered/Resolved]
  - Blood pressure increased [Unknown]
  - Breast mass [Unknown]
  - Alopecia [Unknown]
  - Abdominal distension [Unknown]
  - Abdominal pain [Unknown]

NARRATIVE: CASE EVENT DATE: 20190101
